FAERS Safety Report 10364082 (Version 1)
Quarter: 2014Q3

REPORT INFORMATION
  Report Type: Spontaneous
  Country: IT (occurrence: IT)
  Receive Date: 20140806
  Receipt Date: 20140806
  Transmission Date: 20150326
  Serious: Yes (Other)
  Sender: FDA-Public Use
  Company Number: PHHY2014IT094279

PATIENT
  Age: 86 Year
  Sex: Female

DRUGS (1)
  1. GABAPENTIN. [Suspect]
     Active Substance: GABAPENTIN
     Dosage: 600 MG, ONCE/SINGLE
     Route: 048
     Dates: start: 20140302, end: 20140302

REACTIONS (2)
  - Medication error [Unknown]
  - Sopor [Unknown]

NARRATIVE: CASE EVENT DATE: 20140302
